FAERS Safety Report 6474734-1 (Version None)
Quarter: 2009Q4

REPORT INFORMATION
  Report Type: 
  Country: None (occurrence: None)
  Receive Date: 20091204
  Receipt Date: 20091124
  Transmission Date: 20100525
  Serious: Yes (Other)
  Sender: FDA-Public Use
  Company Number: B0609103A

PATIENT
  Age: 8 Year
  Sex: Female

DRUGS (1)
  1. MELPHALAN [Suspect]
     Route: 042

REACTIONS (2)
  - BONE MARROW FAILURE [None]
  - PAROTITIS [None]
